FAERS Safety Report 4395382-3 (Version None)
Quarter: 2004Q3

REPORT INFORMATION
  Report Type: 
  Country: None (occurrence: None)
  Receive Date: 20040712
  Receipt Date: 20040712
  Transmission Date: 20050211
  Serious: Yes (Other)
  Sender: FDA-Public Use
  Company Number: None

PATIENT
  Sex: Male
  Weight: 89.3586 kg

DRUGS (6)
  1. AZATHIOPRINE [Suspect]
     Indication: MYASTHENIA GRAVIS
     Dosage: 50 MG TWO PO QD
     Route: 048
     Dates: start: 20040603, end: 20040617
  2. MESTINON [Concomitant]
  3. PREDNISONE [Concomitant]
  4. LOTENSIN [Concomitant]
  5. ACTONEL [Concomitant]
  6. ACIPHEX [Concomitant]

REACTIONS (3)
  - ABDOMINAL PAIN UPPER [None]
  - NAUSEA [None]
  - VOMITING [None]
